FAERS Safety Report 20861084 (Version 1)
Quarter: 2022Q2

REPORT INFORMATION
  Report Type: Spontaneous
  Country: CN (occurrence: CN)
  Receive Date: 20220523
  Receipt Date: 20220523
  Transmission Date: 20220720
  Serious: Yes (Other)
  Sender: FDA-Public Use
  Company Number: CN-BAYER-2022A068985

PATIENT
  Age: 27 Year
  Sex: Male

DRUGS (7)
  1. STIVARGA [Suspect]
     Active Substance: REGORAFENIB
     Indication: Colorectal adenocarcinoma
     Dosage: 120 MG, QD
     Route: 048
     Dates: start: 20210228, end: 202106
  2. STIVARGA [Suspect]
     Active Substance: REGORAFENIB
     Indication: Metastases to liver
  3. STIVARGA [Suspect]
     Active Substance: REGORAFENIB
     Indication: Metastases to lung
  4. STIVARGA [Suspect]
     Active Substance: REGORAFENIB
     Indication: Colorectal cancer
  5. RALTITREXED [Concomitant]
     Active Substance: RALTITREXED
     Dosage: 4 MG
     Dates: start: 20210223
  6. IRINOTECAN [Concomitant]
     Active Substance: IRINOTECAN
     Dosage: 80 MG
     Dates: start: 20210223
  7. OXALIPLATIN [Concomitant]
     Active Substance: OXALIPLATIN
     Dosage: 50 MG
     Route: 013
     Dates: start: 20210223

REACTIONS (2)
  - Metastases to liver [Not Recovered/Not Resolved]
  - Off label use [None]

NARRATIVE: CASE EVENT DATE: 20210228
